FAERS Safety Report 23235733 (Version 3)
Quarter: 2023Q4

REPORT INFORMATION
  Report Type: Spontaneous
  Country: US (occurrence: US)
  Receive Date: 20231128
  Receipt Date: 20231227
  Transmission Date: 20240109
  Serious: No
  Sender: FDA-Public Use
  Company Number: US-PFIZER INC-PV202300147860

PATIENT
  Age: 82 Year
  Sex: Female
  Weight: 56.34 kg

DRUGS (3)
  1. RETACRIT [Suspect]
     Active Substance: EPOETIN ALFA-EPBX
     Indication: Nephrogenic anaemia
     Dosage: 4000 IU/ML, MONTHLY
  2. RETACRIT [Suspect]
     Active Substance: EPOETIN ALFA-EPBX
     Indication: Chronic kidney disease
     Dosage: 40000 IU (10,000 UNIT/ML, 4 ML EVERY 4 WEEKS)
  3. RETACRIT [Suspect]
     Active Substance: EPOETIN ALFA-EPBX
     Dosage: 40000 IU/ML, (1 ML EVERY 2 WKS BY INJ FOR 30 DAYS)

REACTIONS (1)
  - Dyspnoea exertional [Unknown]
